FAERS Safety Report 6076326-5 (Version None)
Quarter: 2009Q1

REPORT INFORMATION
  Report Type: 
  Country: None (occurrence: None)
  Receive Date: 20090209
  Receipt Date: 20090126
  Transmission Date: 20090719
  Serious: Yes (Other)
  Sender: FDA-Public Use
  Company Number: 430031K08USA

PATIENT
  Age: 43 Year
  Sex: Female
  Weight: 102 kg

DRUGS (5)
  1. NOVANTRONE [Suspect]
     Indication: MULTIPLE SCLEROSIS
     Dosage: 20 MG, 1 IN 3 MONTHS, INTRAVENOUS (NOT OTHERWISE SPECIFIED); 10 MG, 1 IN 3 MONTHS, INTRAVENOUS (NOT
     Route: 042
     Dates: end: 20080101
  2. NOVANTRONE [Suspect]
     Indication: MULTIPLE SCLEROSIS
     Dosage: 20 MG, 1 IN 3 MONTHS, INTRAVENOUS (NOT OTHERWISE SPECIFIED); 10 MG, 1 IN 3 MONTHS, INTRAVENOUS (NOT
     Route: 042
     Dates: start: 20060113
  3. COPAXONE [Concomitant]
  4. UNSPECIFIED BIRTH CONTROL PILLS (ORAL CONTRACEPTIVE NOS) [Concomitant]
  5. ZANAFLEX [Concomitant]

REACTIONS (1)
  - EJECTION FRACTION DECREASED [None]
